FAERS Safety Report 4891080-8 (Version None)
Quarter: 2006Q1

REPORT INFORMATION
  Report Type: 
  Country: None (occurrence: None)
  Receive Date: 20060125
  Receipt Date: 20051228
  Transmission Date: 20060701
  Serious: Yes (Other)
  Sender: FDA-Public Use
  Company Number: JP-MERCK-0601USA00108

PATIENT
  Age: 52 Year
  Sex: Female

DRUGS (13)
  1. PEPCID [Suspect]
     Indication: PROPHYLAXIS
     Route: 042
     Dates: start: 20051205, end: 20051226
  2. MICAFUNGIN SODIUM [Concomitant]
     Route: 042
     Dates: start: 20051220, end: 20051226
  3. CEFPIROME SULFATE [Concomitant]
     Route: 042
     Dates: start: 20051225, end: 20051226
  4. TRICHLORMETHIAZIDE [Concomitant]
     Route: 048
     Dates: start: 20051225, end: 20051226
  5. AZOSEMIDE [Concomitant]
     Route: 048
     Dates: start: 20051220, end: 20051226
  6. SPIRONOLACTONE [Concomitant]
     Route: 048
     Dates: start: 20051220, end: 20051226
  7. TELMISARTAN [Concomitant]
     Route: 048
     Dates: start: 20051220, end: 20051226
  8. AMLODIPINE BESYLATE [Concomitant]
     Route: 048
     Dates: start: 20051220, end: 20051226
  9. ALFACALCIDOL [Concomitant]
     Route: 048
     Dates: start: 20051220, end: 20051226
  10. CALCIUM CARBONATE [Concomitant]
     Route: 048
     Dates: start: 20051220, end: 20051226
  11. SEVELAMER HYDROCHLORIDE [Concomitant]
     Route: 048
     Dates: start: 20051220, end: 20051226
  12. BEVANTOLOL HYDROCHLORIDE [Concomitant]
     Route: 048
     Dates: start: 20051220, end: 20051226
  13. LOXOPROFEN SODIUM [Concomitant]
     Route: 048
     Dates: start: 20051220, end: 20051226

REACTIONS (2)
  - HALLUCINATION, VISUAL [None]
  - SPEECH DISORDER [None]
